FAERS Safety Report 9149099 (Version 4)
Quarter: 2013Q4

REPORT INFORMATION
  Report Type: Spontaneous
  Country: DE (occurrence: DE)
  Receive Date: 20130308
  Receipt Date: 20131024
  Transmission Date: 20140711
  Serious: Yes (Death, Hospitalization, Other)
  Sender: FDA-Public Use
  Company Number: DE-JNJFOC-20130217109

PATIENT
  Age: 67 Year
  Sex: Male

DRUGS (5)
  1. ZYTIGA [Suspect]
     Indication: PROSTATE CANCER METASTATIC
     Route: 048
  2. ZYTIGA [Suspect]
     Indication: PROSTATE CANCER METASTATIC
     Route: 048
     Dates: start: 20130119, end: 20130303
  3. TRENANTONE [Concomitant]
     Indication: PROSTATE CANCER METASTATIC
     Route: 058
     Dates: start: 20120217
  4. XGEVA [Concomitant]
     Indication: METASTASES TO BONE
     Route: 058
     Dates: start: 20120704
  5. NOVALGIN [Concomitant]
     Indication: PAIN
     Dosage: UP TO 3 G
     Route: 048
     Dates: start: 20120614

REACTIONS (5)
  - Hepatic cancer [Fatal]
  - Metastases to liver [Unknown]
  - Gamma-glutamyltransferase increased [Unknown]
  - Prostatic specific antigen increased [Unknown]
  - Liver function test abnormal [Unknown]
